FAERS Safety Report 8622165-8 (Version None)
Quarter: 2012Q3

REPORT INFORMATION
  Report Type: 
  Country: None (occurrence: None)
  Receive Date: 20120826
  Receipt Date: 20061018
  Transmission Date: 20120928
  Serious: Yes (Death, Hospitalization)
  Sender: FDA-Public Use
  Company Number: PHMT2006CA01487

PATIENT
  Sex: Female

DRUGS (4)
  1. OXYCODONE HCL [Concomitant]
  2. SANDOSTATIN LAR [Suspect]
     Indication: NEUROENDOCRINE CARCINOMA
     Dosage: 20 MG, QMO
     Route: 030
     Dates: start: 20060613
  3. SANDOSTATIN [Suspect]
  4. OXYCONTIN [Concomitant]

REACTIONS (3)
  - DEATH [None]
  - GENERAL PHYSICAL HEALTH DETERIORATION [None]
  - BLOOD POTASSIUM DECREASED [None]
